FAERS Safety Report 23111036 (Version 1)
Quarter: 2023Q4

REPORT INFORMATION
  Report Type: Spontaneous
  Country: PL (occurrence: PL)
  Receive Date: 20231026
  Receipt Date: 20231026
  Transmission Date: 20240109
  Serious: No
  Sender: FDA-Public Use
  Company Number: PL-JAZZ PHARMACEUTICALS-2023-PL-002676

PATIENT
  Age: 8 Year
  Sex: Male

DRUGS (12)
  1. DEFITELIO [Suspect]
     Active Substance: DEFIBROTIDE SODIUM
     Indication: Venoocclusive disease
     Dosage: 4 X 200 MG
     Route: 042
     Dates: start: 20230122
  2. DEFITELIO [Suspect]
     Active Substance: DEFIBROTIDE SODIUM
     Indication: Venoocclusive liver disease
     Dosage: 200 MILLIGRAM, QID
     Route: 042
     Dates: start: 20230122, end: 20230212
  3. MEROPENEM [Concomitant]
     Active Substance: MEROPENEM
     Dosage: 2 X 1.0 G
     Route: 042
  4. ALBUMIN HUMAN [Concomitant]
     Active Substance: ALBUMIN HUMAN
  5. FUROSEMIDE [Concomitant]
     Active Substance: FUROSEMIDE
     Route: 042
  6. VITAMIN K [Concomitant]
     Active Substance: PHYTONADIONE
     Route: 042
  7. ANTITHROMBIN III HUMAN [Concomitant]
     Active Substance: ANTITHROMBIN III HUMAN
  8. FRESH FROZEN PLASMA [Concomitant]
     Active Substance: HUMAN PLASMA
  9. PLATELETS [Concomitant]
     Active Substance: HUMAN PLATELET, ALLOGENIC
  10. MEROPENEM [Concomitant]
     Active Substance: MEROPENEM
     Dosage: UNK
     Route: 042
     Dates: start: 20230122, end: 20230214
  11. ALDACTONE [Concomitant]
     Active Substance: SPIRONOLACTONE
     Dosage: UNK
     Route: 042
     Dates: start: 20230121, end: 20230217
  12. CRYOPRECIPITATED ANTIHEMOPHILIC FACTOR (HUMAN) [Concomitant]
     Active Substance: CRYOPRECIPITATED ANTIHEMOPHILIC FACTOR (HUMAN)

REACTIONS (1)
  - Haemoptysis [Recovered/Resolved]

NARRATIVE: CASE EVENT DATE: 20230209
